FAERS Safety Report 25815643 (Version 1)
Quarter: 2025Q3

REPORT INFORMATION
  Report Type: Spontaneous
  Country: CA (occurrence: CA)
  Receive Date: 20250918
  Receipt Date: 20250918
  Transmission Date: 20251020
  Serious: Yes (Congenital Anomaly)
  Sender: ROCHE
  Company Number: CA-ROCHE-10000380763

PATIENT
  Sex: Female

DRUGS (18)
  1. RITUXIMAB [Suspect]
     Active Substance: RITUXIMAB
     Indication: Product used for unknown indication
     Route: 064
  2. RITUXIMAB [Suspect]
     Active Substance: RITUXIMAB
     Route: 064
  3. RITUXIMAB [Suspect]
     Active Substance: RITUXIMAB
     Route: 064
  4. RITUXIMAB [Suspect]
     Active Substance: RITUXIMAB
     Route: 064
  5. RITUXIMAB [Suspect]
     Active Substance: RITUXIMAB
     Route: 064
  6. RITUXIMAB [Suspect]
     Active Substance: RITUXIMAB
     Route: 064
  7. RITUXIMAB [Suspect]
     Active Substance: RITUXIMAB
     Route: 064
  8. RITUXIMAB [Suspect]
     Active Substance: RITUXIMAB
     Route: 064
  9. ACTEMRA [Suspect]
     Active Substance: TOCILIZUMAB
     Indication: Product used for unknown indication
     Route: 064
  10. ACTEMRA [Suspect]
     Active Substance: TOCILIZUMAB
     Route: 064
  11. ACTEMRA [Suspect]
     Active Substance: TOCILIZUMAB
     Route: 064
  12. ACTEMRA [Suspect]
     Active Substance: TOCILIZUMAB
     Route: 064
  13. ACTEMRA [Suspect]
     Active Substance: TOCILIZUMAB
     Route: 064
  14. ACTEMRA [Suspect]
     Active Substance: TOCILIZUMAB
     Route: 064
  15. ACTEMRA [Suspect]
     Active Substance: TOCILIZUMAB
     Route: 064
  16. DESOGESTREL [Concomitant]
     Active Substance: DESOGESTREL
  17. DESOGESTREL\ETHINYL ESTRADIOL [Concomitant]
     Active Substance: DESOGESTREL\ETHINYL ESTRADIOL
  18. NAPROXEN [Concomitant]
     Active Substance: NAPROXEN

REACTIONS (2)
  - Congenital anomaly [Not Recovered/Not Resolved]
  - Foetal exposure during pregnancy [Unknown]
